FAERS Safety Report 6705611-6 (Version None)
Quarter: 2010Q2

REPORT INFORMATION
  Report Type: 
  Country: None (occurrence: None)
  Receive Date: 20100503
  Receipt Date: 20100426
  Transmission Date: 20101027
  Serious: No
  Sender: FDA-Public Use
  Company Number: US-BIOGENIDEC-2010BI013640

PATIENT
  Age: 64 Year
  Sex: Male

DRUGS (1)
  1. AVONEX [Suspect]
     Indication: MULTIPLE SCLEROSIS
     Route: 030
     Dates: start: 20070402

REACTIONS (6)
  - EYE INFECTION [None]
  - EYE PAIN [None]
  - EYE SWELLING [None]
  - NECK PAIN [None]
  - RASH MACULAR [None]
  - STAPHYLOCOCCAL SKIN INFECTION [None]
